FAERS Safety Report 22300797 (Version 4)
Quarter: 2025Q3

REPORT INFORMATION
  Report Type: Spontaneous
  Country: US (occurrence: US)
  Receive Date: 20230509
  Receipt Date: 20250701
  Transmission Date: 20251020
  Serious: No
  Sender: SANOFI AVENTIS
  Company Number: US-SA-SAC00000000043442

PATIENT
  Age: 58 Year
  Sex: Female

DRUGS (3)
  1. DUPIXENT [Suspect]
     Active Substance: DUPILUMAB
     Indication: Dermatitis atopic
     Route: 058
     Dates: start: 201910, end: 201910
  2. DUPIXENT [Suspect]
     Active Substance: DUPILUMAB
     Dosage: 300 MG, QOW
     Route: 058
     Dates: start: 2019, end: 2025
  3. OZEMPIC [Concomitant]
     Active Substance: SEMAGLUTIDE

REACTIONS (2)
  - Joint injury [Unknown]
  - Arthralgia [Unknown]

NARRATIVE: CASE EVENT DATE: 20250501
